FAERS Safety Report 8273359-5 (Version None)
Quarter: 2012Q2

REPORT INFORMATION
  Report Type: 
  Country: None (occurrence: None)
  Receive Date: 20120411
  Receipt Date: 20120404
  Transmission Date: 20120825
  Serious: Yes (Other)
  Sender: FDA-Public Use
  Company Number: PHHY2011JP83070

PATIENT
  Age: 47 Year
  Sex: Female

DRUGS (2)
  1. FEMARA [Suspect]
     Indication: BREAST CANCER
     Dosage: 2.5 MG, DAILY
     Route: 048
     Dates: start: 20080101, end: 20110801
  2. LEUPROLIDE ACETATE [Suspect]
     Dosage: UNK UKN, UNK
     Route: 058

REACTIONS (4)
  - ANTINUCLEAR ANTIBODY INCREASED [None]
  - PARKINSON'S DISEASE [None]
  - COLLAGEN DISORDER [None]
  - BASAL GANGLION DEGENERATION [None]
